FAERS Safety Report 4402382-3 (Version None)
Quarter: 2004Q3

REPORT INFORMATION
  Report Type: 
  Country: None (occurrence: None)
  Receive Date: 20040716
  Receipt Date: 20040713
  Transmission Date: 20050211
  Serious: Yes (Death)
  Sender: FDA-Public Use
  Company Number: 04-07-0996

PATIENT
  Age: 27 Year
  Sex: Male
  Weight: 58 kg

DRUGS (1)
  1. QUININE [Suspect]
     Indication: PLASMODIUM FALCIPARUM INFECTION
     Dosage: 600MG TID INTRAVENOUS
     Route: 042

REACTIONS (2)
  - COMPLETED SUICIDE [None]
  - INJURY ASPHYXIATION [None]
